FAERS Safety Report 14098459 (Version 5)
Quarter: 2018Q1

REPORT INFORMATION
  Report Type: Report from Study
  Country: US (occurrence: US)
  Receive Date: 20171017
  Receipt Date: 20180105
  Transmission Date: 20180508
  Serious: Yes (Hospitalization, Other)
  Sender: FDA-Public Use
  Company Number: US-GILEAD-2017-0298528

PATIENT
  Age: 58 Year
  Sex: Female
  Weight: 62 kg

DRUGS (25)
  1. XARELTO [Concomitant]
     Active Substance: RIVAROXABAN
  2. REMODULIN [Concomitant]
     Active Substance: TREPROSTINIL
  3. PNEUMOCOCCAL VACCINE POLYVALENT NOS [Concomitant]
     Active Substance: PNEUMOCOCCAL VACCINE POLYVALENT
  4. INFLUENZA VACCINE [Concomitant]
     Active Substance: INFLUENZA VIRUS VACCINE
  5. SILDENAFIL CITRATE. [Concomitant]
     Active Substance: SILDENAFIL CITRATE
  6. SODIUM CHLORIDE. [Concomitant]
     Active Substance: SODIUM CHLORIDE
  7. MAGNESIUM OXIDE. [Concomitant]
     Active Substance: MAGNESIUM OXIDE
  8. FLONASE                            /00908302/ [Concomitant]
     Active Substance: MOMETASONE FUROATE
  9. SIMETHICONE (DIMETHICONE) [Concomitant]
     Active Substance: DIMETHICONE
  10. MAALOX ADVANCED                    /00416501/ [Concomitant]
  11. TYLENOL [Concomitant]
     Active Substance: ACETAMINOPHEN
  12. OCEAN SALINE NASAL SPRAY [Concomitant]
     Active Substance: SODIUM CHLORIDE
  13. AMBRISENTAN [Suspect]
     Active Substance: AMBRISENTAN
     Dosage: 5 MG, QD
     Route: 048
     Dates: start: 20170822
  14. LASIX [Concomitant]
     Active Substance: FUROSEMIDE
  15. PREDNISONE. [Concomitant]
     Active Substance: PREDNISONE
  16. K-DUR [Concomitant]
     Active Substance: POTASSIUM CHLORIDE
  17. ARTIFICIAL TEARS                   /00222401/ [Concomitant]
     Active Substance: PROPYLENE GLYCOL
  18. CALCIUM CHOLECALCIFEROL BERES [Concomitant]
  19. AMBRISENTAN [Suspect]
     Active Substance: AMBRISENTAN
     Indication: PRODUCT USED FOR UNKNOWN INDICATION
     Dosage: 10 MG, QD
     Route: 048
     Dates: start: 20170920
  20. ROBITUSSIN (GUAIFENESIN) [Concomitant]
     Active Substance: GUAIFENESIN
  21. CLARITIN [Concomitant]
     Active Substance: LORATADINE
  22. COLACE [Concomitant]
     Active Substance: DOCUSATE SODIUM
  23. AMLODIPINE [Concomitant]
     Active Substance: AMLODIPINE BESYLATE
  24. TREPROSTINIL SODIUM [Concomitant]
     Active Substance: TREPROSTINIL SODIUM
  25. ZANTAC [Concomitant]
     Active Substance: RANITIDINE HYDROCHLORIDE

REACTIONS (13)
  - Feeling jittery [Unknown]
  - Dermatitis contact [Recovering/Resolving]
  - Atrial fibrillation [Unknown]
  - Dyspnoea [Recovered/Resolved]
  - Atrial flutter [Unknown]
  - Blood alkaline phosphatase increased [Unknown]
  - Alanine aminotransferase increased [Unknown]
  - Hypoxia [Recovered/Resolved]
  - Blood albumin decreased [Unknown]
  - Aspartate aminotransferase increased [Unknown]
  - Haemoglobin decreased [Unknown]
  - Chest pain [Recovered/Resolved]
  - Catheter site pain [Unknown]

NARRATIVE: CASE EVENT DATE: 20171011
